FAERS Safety Report 4427181-8 (Version None)
Quarter: 2004Q3

REPORT INFORMATION
  Report Type: 
  Country: None (occurrence: None)
  Receive Date: 20040726
  Receipt Date: 20040510
  Transmission Date: 20050211
  Serious: No
  Sender: FDA-Public Use
  Company Number: USA040466046

PATIENT
  Age: 67 Year
  Sex: Male

DRUGS (3)
  1. FORTEO [Suspect]
     Dates: start: 20040401
  2. PREVACID [Concomitant]
  3. ACTONEL (RISENDRONATE SODIUM) [Concomitant]

REACTIONS (4)
  - FEELING HOT [None]
  - FLUSHING [None]
  - GASTROOESOPHAGEAL REFLUX DISEASE [None]
  - SOMNOLENCE [None]
